FAERS Safety Report 10908953 (Version 1)
Quarter: 2015Q1

REPORT INFORMATION
  Report Type: Spontaneous
  Country: US (occurrence: US)
  Receive Date: 20150312
  Receipt Date: 20150312
  Transmission Date: 20150721
  Serious: No
  Sender: FDA-Public Use
  Company Number: US-SA-2014SA030848

PATIENT
  Age: 24 Year
  Sex: Female

DRUGS (1)
  1. NASACORT ALLERGY 24HR [Suspect]
     Active Substance: TRIAMCINOLONE ACETONIDE
     Indication: MULTIPLE ALLERGIES
     Dosage: TAKEN FROM: WEEK
     Route: 065

REACTIONS (4)
  - Rhinorrhoea [Recovering/Resolving]
  - Therapeutic response decreased [Unknown]
  - Feeling abnormal [Unknown]
  - Oropharyngeal pain [Recovering/Resolving]
